FAERS Safety Report 6612346-7 (Version None)
Quarter: 2010Q1

REPORT INFORMATION
  Report Type: 
  Country: None (occurrence: None)
  Receive Date: 20100303
  Receipt Date: 20100219
  Transmission Date: 20100710
  Serious: Yes (Hospitalization)
  Sender: FDA-Public Use
  Company Number: FR-WYE-H13738610

PATIENT
  Sex: Male
  Weight: 80 kg

DRUGS (2)
  1. TEMSIROLIMUS [Suspect]
     Indication: RENAL CELL CARCINOMA
     Route: 042
     Dates: start: 20100204, end: 20100201
  2. BEVACIZUMAB, TEST ARTICLE IN TEMSIROLIMUS STUDY [Suspect]
     Indication: RENAL CELL CARCINOMA
     Route: 042
     Dates: start: 20100204

REACTIONS (1)
  - ANAL FISTULA [None]
